FAERS Safety Report 6435443-8 (Version None)
Quarter: 2009Q4

REPORT INFORMATION
  Report Type: 
  Country: None (occurrence: None)
  Receive Date: 20091106
  Receipt Date: 20091102
  Transmission Date: 20100525
  Serious: Yes (Hospitalization)
  Sender: FDA-Public Use
  Company Number: 20097428

PATIENT
  Age: 61 Year
  Sex: Male

DRUGS (1)
  1. GABALON                     (BACLOFEN INJECTION) [Suspect]
     Indication: MUSCLE SPASTICITY
     Dosage: MCG, DAILY, INTRATHECAL
     Route: 037
     Dates: start: 20090512

REACTIONS (8)
  - BACTERIAL TEST POSITIVE [None]
  - CONVULSION [None]
  - ERYTHEMA [None]
  - MUSCLE DISORDER [None]
  - RESPIRATORY DISTRESS [None]
  - SEPTIC SHOCK [None]
  - TREMOR [None]
  - URINARY TRACT INFECTION [None]
